FAERS Safety Report 6721481-4 (Version None)
Quarter: 2010Q2

REPORT INFORMATION
  Report Type: 
  Country: None (occurrence: None)
  Receive Date: 20100512
  Receipt Date: 20100429
  Transmission Date: 20101027
  Serious: Yes (Other)
  Sender: FDA-Public Use
  Company Number: US-ASTRAZENECA-2005UW17808

PATIENT
  Age: 70 Year
  Sex: Female
  Weight: 62.1 kg

DRUGS (5)
  1. ZESTORETIC [Suspect]
     Indication: HYPERTENSION
     Dosage: 10-12.5 MG
     Route: 048
     Dates: start: 20020101, end: 20051123
  2. ATENOLOL [Suspect]
     Indication: HYPERTENSION
     Route: 048
  3. SULFA [Concomitant]
  4. ATENOLOL/CHLORTHIADONE(MYLAN) [Concomitant]
     Dates: end: 20080501
  5. BACTRIM [Concomitant]

REACTIONS (14)
  - BLADDER CANCER [None]
  - DEAFNESS [None]
  - EYE DISORDER [None]
  - EYE HAEMORRHAGE [None]
  - HEADACHE [None]
  - HEART RATE IRREGULAR [None]
  - HYPERTENSION [None]
  - NERVOUS SYSTEM DISORDER [None]
  - PAIN [None]
  - RENAL FAILURE [None]
  - TINNITUS [None]
  - TRANSIENT ISCHAEMIC ATTACK [None]
  - TYMPANIC MEMBRANE PERFORATION [None]
  - VISUAL IMPAIRMENT [None]
